FAERS Safety Report 16721174 (Version 1)
Quarter: 2019Q3

REPORT INFORMATION
  Report Type: Spontaneous
  Country: US (occurrence: US)
  Receive Date: 20190703
  Receipt Date: 20190703
  Transmission Date: 20191005
  Serious: No
  Sender: FDA-Public Use
  Company Number: None

PATIENT
  Age: 55 Year
  Sex: Male

DRUGS (1)
  1. XGEVA [Suspect]
     Active Substance: DENOSUMAB
     Indication: METASTASES TO BONE
     Dosage: ?          OTHER FREQUENCY:UNKNWON;?
     Route: 058
     Dates: start: 201904, end: 20190703

REACTIONS (1)
  - Disease progression [None]

NARRATIVE: CASE EVENT DATE: 20190703
